FAERS Safety Report 10667406 (Version 1)
Quarter: 2014Q4

REPORT INFORMATION
  Report Type: Spontaneous
  Country: US (occurrence: None)
  Receive Date: 20141219
  Receipt Date: 20141219
  Transmission Date: 20150529
  Serious: No
  Sender: FDA-Public Use
  Company Number: None

PATIENT
  Age: 55 Year
  Sex: Female

DRUGS (1)
  1. TECFIDERA [Suspect]
     Active Substance: DIMETHYL FUMARATE
     Indication: MULTIPLE SCLEROSIS
     Dosage: TECFIDERA 240 MG TWICE DAILY ORAL
     Route: 048
     Dates: start: 20141009

REACTIONS (4)
  - Abdominal discomfort [None]
  - Pain [None]
  - Flatulence [None]
  - Burning sensation [None]

NARRATIVE: CASE EVENT DATE: 20141218
